FAERS Safety Report 12703790 (Version 1)
Quarter: 2016Q3

REPORT INFORMATION
  Report Type: Spontaneous
  Country: US (occurrence: US)
  Receive Date: 20160831
  Receipt Date: 20160831
  Transmission Date: 20161109
  Serious: Yes (Life-Threatening, Hospitalization)
  Sender: FDA-Public Use
  Company Number: US-LPDUSPRD-20160758

PATIENT
  Age: 60 Year

DRUGS (2)
  1. GLYCOPYRROLATE. [Concomitant]
     Active Substance: GLYCOPYRROLATE
  2. ONDANSETRON INJECTION (4420-01) [Suspect]
     Active Substance: ONDANSETRON
     Dosage: 4 MG
     Route: 065

REACTIONS (3)
  - Loss of consciousness [Unknown]
  - Bradycardia [Unknown]
  - Respiratory arrest [Unknown]
